FAERS Safety Report 5132580-5 (Version None)
Quarter: 2006Q4

REPORT INFORMATION
  Report Type: 
  Country: None (occurrence: None)
  Receive Date: 20061020
  Receipt Date: 20061020
  Transmission Date: 20070319
  Serious: Yes (Hospitalization)
  Sender: FDA-Public Use
  Company Number: None

PATIENT
  Age: 63 Year
  Sex: Male
  Weight: 72.5755 kg

DRUGS (1)
  1. BEVACIZUMAB 100 MG VIALS 25 MG/ ML GENENTECH [Suspect]
     Indication: PANCREATIC CARCINOMA METASTATIC
     Dosage: 764 MG   Q 2 WEEKS   IV
     Route: 042
     Dates: start: 20060919, end: 20061003

REACTIONS (4)
  - ABDOMINAL PAIN [None]
  - INCISION SITE OEDEMA [None]
  - INCISIONAL DRAINAGE [None]
  - WOUND DEHISCENCE [None]
